FAERS Safety Report 5947543-7 (Version None)
Quarter: 2008Q4

REPORT INFORMATION
  Report Type: 
  Country: None (occurrence: None)
  Receive Date: 20081110
  Receipt Date: 20081103
  Transmission Date: 20090506
  Serious: Yes (Death)
  Sender: FDA-Public Use
  Company Number: PHHY2008US27034

PATIENT
  Age: 72 Year
  Sex: Male

DRUGS (1)
  1. NEORAL [Suspect]
     Dosage: 175 MG, QD
     Route: 048
     Dates: start: 20030201

REACTIONS (1)
  - DEATH [None]
